FAERS Safety Report 11702076 (Version 1)
Quarter: 2015Q4

REPORT INFORMATION
  Report Type: Report from Study
  Country: BR (occurrence: BR)
  Receive Date: 20151105
  Receipt Date: 20151105
  Transmission Date: 20160304
  Serious: Yes (Hospitalization)
  Sender: FDA-Public Use
  Company Number: BR-BAXALTA-2015BLT002466

PATIENT
  Sex: Male
  Weight: 59 kg

DRUGS (1)
  1. FEIBA [Suspect]
     Active Substance: ANTI-INHIBITOR COAGULANT COMPLEX
     Indication: HAEMORRHAGE
     Route: 065

REACTIONS (1)
  - Mouth swelling [Unknown]

NARRATIVE: CASE EVENT DATE: 20151027
